FAERS Safety Report 17319558 (Version 6)
Quarter: 2020Q3

REPORT INFORMATION
  Report Type: Other
  Country: CZ (occurrence: CZ)
  Receive Date: 20200125
  Receipt Date: 20200908
  Transmission Date: 20201102
  Serious: Yes (Hospitalization)
  Sender: FDA-Public Use
  Company Number: CZ-ROCHE-2527886

PATIENT
  Age: 56 Year
  Sex: Male

DRUGS (15)
  1. VENETOCLAX. [Suspect]
     Active Substance: VENETOCLAX
     Dosage: INITIAL COMBINATION THERAPY WITH VENETOCLAX, RITUXIMAB AND CYCLOPHOSPHAMIDE
     Route: 065
     Dates: start: 20181109
  2. VENETOCLAX. [Suspect]
     Active Substance: VENETOCLAX
     Route: 065
     Dates: start: 201811
  3. VENETOCLAX. [Suspect]
     Active Substance: VENETOCLAX
     Indication: CHRONIC LYMPHOCYTIC LEUKAEMIA
     Dosage: UNK
     Route: 065
     Dates: start: 20160624
  4. RITUXIMAB. [Suspect]
     Active Substance: RITUXIMAB
     Indication: CHRONIC LYMPHOCYTIC LEUKAEMIA
     Dosage: 375 MG/M2 (LAST CYCLE COMBINATION WITH VENETOCLAX AND CYCLOPHOSPHAMIDE)
     Route: 042
     Dates: end: 20190423
  5. RITUXIMAB. [Suspect]
     Active Substance: RITUXIMAB
     Dosage: 375 MG/M2 (INITIAL COMBINATION WITH VENETOCLAX AND CYCLOPHOSPHAMIDE) ?CONCENTRATE FOR CONCENTRATE FO
     Route: 042
     Dates: start: 20181109
  6. RITUXIMAB. [Suspect]
     Active Substance: RITUXIMAB
     Dosage: 375 MG/M2 (FCR THERAPY)
     Route: 042
     Dates: start: 201010, end: 201107
  7. VENETOCLAX. [Suspect]
     Active Substance: VENETOCLAX
     Dosage: 6TH CYCLE COMBINATION THERAPY WITH VENETOCLAX, RITUXIMAB AND CYCLOPHOSPHAMIDE
     Route: 065
  8. VENETOCLAX. [Suspect]
     Active Substance: VENETOCLAX
     Dosage: 6TH CYCLE COMBINATION THERAPY WITH VENETOCLAX, RITUXIMAB AND CYCLOPHOSPHAMIDE
     Route: 065
     Dates: end: 20190423
  9. VENETOCLAX. [Suspect]
     Active Substance: VENETOCLAX
     Dosage: 7TH CYCLE COMBINATION THERAPY WITH VENETOCLAX, RITUXIMAB AND CYCLOPHOSPHAMIDE
     Route: 065
     Dates: start: 20190423
  10. CYCLOPHOSPHAMIDE. [Suspect]
     Active Substance: CYCLOPHOSPHAMIDE
     Indication: CHRONIC LYMPHOCYTIC LEUKAEMIA
     Dosage: UNK (FCR THERAPY)
     Route: 065
     Dates: start: 201301, end: 201306
  11. RITUXIMAB. [Suspect]
     Active Substance: RITUXIMAB
     Dosage: 375 MG/M2 (BR THERAPY)
     Route: 042
     Dates: start: 201504, end: 201808
  12. VENETOCLAX. [Suspect]
     Active Substance: VENETOCLAX
     Indication: DISEASE PROGRESSION
     Dosage: LAST CYCLE COMBINATION THERAPY WITH VENETOCLAX, RITUXIMAB AND CYCLOPHOSPHAMIDE
     Route: 065
  13. VENETOCLAX. [Suspect]
     Active Substance: VENETOCLAX
     Dosage: UNK
     Route: 065
     Dates: start: 20160626
  14. VENETOCLAX. [Suspect]
     Active Substance: VENETOCLAX
     Dosage: 7TH CYCLE COMBINATION THERAPY WITH VENETOCLAX, RITUXIMAB AND CYCLOPHOSPHAMIDE
     Route: 065
  15. PEGFILGRASTIM [Suspect]
     Active Substance: PEGFILGRASTIM
     Indication: PRODUCT USED FOR UNKNOWN INDICATION
     Route: 065

REACTIONS (2)
  - Cellulitis [Unknown]
  - Neutropenia [Unknown]
